FAERS Safety Report 14785905 (Version 2)
Quarter: 2018Q3

REPORT INFORMATION
  Report Type: Spontaneous
  Country: US (occurrence: US)
  Receive Date: 20180420
  Receipt Date: 20180821
  Transmission Date: 20181010
  Serious: Yes (Hospitalization, Disabling, Other)
  Sender: FDA-Public Use
  Company Number: US-009507513-1804USA007802

PATIENT
  Sex: Female
  Weight: 111.11 kg

DRUGS (1)
  1. NUVARING [Suspect]
     Active Substance: ETHINYL ESTRADIOL\ETONOGESTREL
     Indication: CONTRACEPTION
     Dosage: INSERT FOR 3 WEEKS, THEN REMOVE FOR 1 WEEK
     Route: 067
     Dates: start: 201507, end: 20160602

REACTIONS (10)
  - Blood pressure increased [Recovering/Resolving]
  - Atrial thrombosis [Unknown]
  - Leukocytosis [Unknown]
  - Pneumonia [Unknown]
  - Pain [Unknown]
  - Asthma [Unknown]
  - Sleep disorder [Unknown]
  - Anxiety [Unknown]
  - Swelling [Unknown]
  - Pulmonary embolism [Unknown]

NARRATIVE: CASE EVENT DATE: 201605
